FAERS Safety Report 16272368 (Version 1)
Quarter: 2019Q2

REPORT INFORMATION
  Report Type: Spontaneous
  Country: US (occurrence: US)
  Receive Date: 20190506
  Receipt Date: 20190506
  Transmission Date: 20190711
  Serious: No
  Sender: FDA-Public Use
  Company Number: US-TEVA-2019-US-1047087

PATIENT
  Sex: Male

DRUGS (1)
  1. CETIRIZINE HYDROCHLORIDE-PSEUDOEPHEDRINE HYDROCHLORIDE ER 176 [Suspect]
     Active Substance: CETIRIZINE HYDROCHLORIDE\PSEUDOEPHEDRINE HYDROCHLORIDE
     Indication: HYPERSENSITIVITY
     Dosage: (PSEUDOEPHEDRINE HYDROCHLORIDE120 MG, CETIRIZINE HYDROCHOLRIDE 5 MG)
     Route: 048
     Dates: start: 201904

REACTIONS (3)
  - Feeling abnormal [Unknown]
  - Somnolence [Unknown]
  - Abnormal dreams [Unknown]

NARRATIVE: CASE EVENT DATE: 201904
